FAERS Safety Report 9515364 (Version 1)
Quarter: 2013Q3

REPORT INFORMATION
  Report Type: Spontaneous
  Country: GB (occurrence: None)
  Receive Date: 20130909
  Receipt Date: 20130909
  Transmission Date: 20140515
  Serious: Yes (Hospitalization, Other)
  Sender: FDA-Public Use
  Company Number: GB-DEXPHARM-20130528

PATIENT
  Age: 88 Year
  Sex: Female

DRUGS (5)
  1. OMEPRAZOLE [Suspect]
     Route: 048
  2. ATENOLOL [Concomitant]
  3. CALCICHEW D3 [Concomitant]
  4. FERROUS FUMERATE [Concomitant]
  5. PARACETAMOL [Concomitant]

REACTIONS (12)
  - Hyponatraemia [None]
  - Lethargy [None]
  - Fatigue [None]
  - Mobility decreased [None]
  - Decreased appetite [None]
  - Dyspnoea exertional [None]
  - Hepatomegaly [None]
  - Lower respiratory tract infection [None]
  - Atrial fibrillation [None]
  - Local swelling [None]
  - Malaise [None]
  - Cough [None]
